FAERS Safety Report 8785334 (Version 2)
Quarter: 2012Q4

REPORT INFORMATION
  Report Type: 
  Country: US (occurrence: US)
  Receive Date: 20120914
  Receipt Date: 20120929
  Transmission Date: 20130627
  Serious: Yes (Other)
  Sender: FDA-Public Use
  Company Number: US-009507513-1209USA001957

PATIENT
  Age: 68 Year
  Sex: Female

DRUGS (4)
  1. PEG-INTRON [Suspect]
     Indication: HEPATITIS C
     Dosage: UNK
     Dates: start: 20070101, end: 20070301
  2. PEG-INTRON [Suspect]
     Dosage: UNK
     Route: 059
     Dates: start: 20120828
  3. REBETOL [Suspect]
     Indication: HEPATITIS C
     Dosage: UNK
     Dates: start: 20070101, end: 20070301
  4. REBETOL [Suspect]
     Dosage: UNK
     Dates: start: 20120828

REACTIONS (2)
  - Transfusion [Unknown]
  - Hepatitis C [Unknown]
